FAERS Safety Report 16930670 (Version 1)
Quarter: 2019Q4

REPORT INFORMATION
  Report Type: Spontaneous
  Country: US (occurrence: US)
  Receive Date: 20191017
  Receipt Date: 20191017
  Transmission Date: 20200122
  Serious: No
  Sender: FDA-Public Use
  Company Number: US-JUBILANT CADISTA PHARMACEUTICALS-2019JUB00278

PATIENT
  Sex: Female
  Weight: 58.96 kg

DRUGS (1)
  1. PREDNISONE. [Suspect]
     Active Substance: PREDNISONE

REACTIONS (5)
  - Oral pain [Unknown]
  - Glossitis [Unknown]
  - Glossodynia [Unknown]
  - Stomatitis [Unknown]
  - Oral pruritus [Unknown]
